FAERS Safety Report 4344683-3 (Version None)
Quarter: 2004Q2

REPORT INFORMATION
  Report Type: 
  Country: None (occurrence: None)
  Receive Date: 20040419
  Receipt Date: 20040405
  Transmission Date: 20050107
  Serious: Yes (Other)
  Sender: FDA-Public Use
  Company Number: 2004017095

PATIENT
  Age: 67 Year
  Sex: Male
  Weight: 85 kg

DRUGS (3)
  1. SORTIS (ATORVASTATIN) [Suspect]
     Indication: HYPERCHOLESTEROLAEMIA
     Dosage: 10 MG, DAILY, ORAL
     Route: 048
     Dates: start: 20000901
  2. TELMISARTAN [Concomitant]
  3. PANTOPRAZOLE SODIUM [Concomitant]

REACTIONS (7)
  - BENCE JONES PROTEINURIA [None]
  - BLOOD CREATINE INCREASED [None]
  - GAMMOPATHY [None]
  - HYPERGAMMAGLOBULINAEMIA [None]
  - IMMUNOGLOBULINS INCREASED [None]
  - LIGHT CHAIN ANALYSIS ABNORMAL [None]
  - PLASMACYTOMA [None]
